FAERS Safety Report 6423839-X (Version None)
Quarter: 2009Q4

REPORT INFORMATION
  Report Type: 
  Country: None (occurrence: None)
  Receive Date: 20091028
  Receipt Date: 20091013
  Transmission Date: 20100525
  Serious: Yes (Other)
  Sender: FDA-Public Use
  Company Number: 412581

PATIENT
  Age: 37 Year
  Sex: Female
  Weight: 50 kg

DRUGS (5)
  1. PACLITAXEL [Suspect]
     Indication: CERVIX CARCINOMA
     Dosage: 266 MG, INTRAVENOUS
     Route: 042
     Dates: start: 20090917, end: 20090917
  2. (DEXCHLORPHENIRAMINE MALEATE) [Concomitant]
  3. RANITIDINE [Concomitant]
  4. DEXAMETHASONE [Concomitant]
  5. GRANISETRON HCL [Concomitant]

REACTIONS (5)
  - ERYTHEMA [None]
  - FLUSHING [None]
  - HYPERSENSITIVITY [None]
  - LARYNGEAL OEDEMA [None]
  - VASODILATION PROCEDURE [None]
